FAERS Safety Report 23727235 (Version 1)
Quarter: 2024Q2

REPORT INFORMATION
  Report Type: Spontaneous
  Country: PT (occurrence: PT)
  Receive Date: 20240410
  Receipt Date: 20240410
  Transmission Date: 20240716
  Serious: Yes (Hospitalization, Other)
  Sender: FDA-Public Use
  Company Number: PT-MLMSERVICE-20240319-4887598-1

PATIENT

DRUGS (1)
  1. ATORVASTATIN [Suspect]
     Active Substance: ATORVASTATIN
     Indication: Dyslipidaemia
     Dosage: FOR 7 YEARS PRIOR
     Route: 065

REACTIONS (5)
  - Fall [Recovered/Resolved]
  - Dermatomyositis [Recovered/Resolved]
  - Heliotrope rash [Recovered/Resolved]
  - Polymyositis [Recovered/Resolved]
  - Immune-mediated myositis [Recovered/Resolved]
